FAERS Safety Report 5738118-3 (Version None)
Quarter: 2008Q2

REPORT INFORMATION
  Report Type: 
  Country: None (occurrence: None)
  Receive Date: 20080514
  Receipt Date: 20080503
  Transmission Date: 20081010
  Serious: Yes (Other)
  Sender: FDA-Public Use
  Company Number: US-PFIZER INC-2008039230

PATIENT
  Sex: Female
  Weight: 73.5 kg

DRUGS (1)
  1. CHANTIX [Suspect]
     Indication: SMOKING CESSATION THERAPY
     Route: 048
     Dates: start: 20080229, end: 20080308

REACTIONS (5)
  - DERMATITIS [None]
  - DRUG ADMINISTRATION ERROR [None]
  - GENITAL RASH [None]
  - PRURITUS GENITAL [None]
  - RASH [None]
